FAERS Safety Report 5700801-3 (Version None)
Quarter: 2008Q2

REPORT INFORMATION
  Report Type: 
  Country: None (occurrence: None)
  Receive Date: 20080407
  Receipt Date: 20080325
  Transmission Date: 20081010
  Serious: Yes (Other)
  Sender: FDA-Public Use
  Company Number: 2007BI020473

PATIENT
  Age: 34 Year
  Sex: Female

DRUGS (2)
  1. AVONEX [Suspect]
     Indication: MULTIPLE SCLEROSIS
     Dosage: 30 UG; QW; IM
     Route: 030
     Dates: end: 20070615
  2. VITAMIN AND MINERAL PRENATAL SUPPLEMENT W/ FOLIC ACID CAP [Concomitant]

REACTIONS (10)
  - ANAEMIA OF PREGNANCY [None]
  - CAESAREAN SECTION [None]
  - CARDIOLIPIN ANTIBODY POSITIVE [None]
  - COMPLICATION OF PREGNANCY [None]
  - DRUG EXPOSURE DURING PREGNANCY [None]
  - FALL [None]
  - FOETAL HEART RATE INCREASED [None]
  - PLATELET COUNT DECREASED [None]
  - PREGNANCY [None]
  - PREMATURE LABOUR [None]
